FAERS Safety Report 10927970 (Version 1)
Quarter: 2015Q1

REPORT INFORMATION
  Report Type: Spontaneous
  Country: US (occurrence: None)
  Receive Date: 20150317
  Receipt Date: 20150317
  Transmission Date: 20150721
  Serious: No
  Sender: FDA-Public Use
  Company Number: None

PATIENT
  Age: 28 Year
  Sex: Female
  Weight: 72.58 kg

DRUGS (1)
  1. LEVONORGESTREL. [Suspect]
     Active Substance: LEVONORGESTREL
     Indication: CONTRACEPTION
     Dosage: TAKEN BY MOUITH
     Dates: start: 20150316, end: 20150316

REACTIONS (5)
  - Dyspnoea [None]
  - Dizziness [None]
  - Weight decreased [None]
  - Nausea [None]
  - Heart rate increased [None]

NARRATIVE: CASE EVENT DATE: 20150316
